FAERS Safety Report 8709266 (Version 3)
Quarter: 2012Q4

REPORT INFORMATION
  Report Type: 
  Country: US (occurrence: US)
  Receive Date: 20120806
  Receipt Date: 20120928
  Transmission Date: 20130627
  Serious: Yes (Hospitalization, Other)
  Sender: FDA-Public Use
  Company Number: US-ACTELION-A-US2012-69419

PATIENT
  Age: 63 Year
  Sex: Female

DRUGS (4)
  1. TRACLEER [Suspect]
     Indication: PULMONARY ARTERIAL HYPERTENSION
     Dosage: UNK
     Route: 048
  2. CALCIUM CHANNEL BLOCKERS [Concomitant]
  3. AMLODIPINE [Concomitant]
  4. SPIRONOLACTONE [Concomitant]

REACTIONS (7)
  - Wound [Recovering/Resolving]
  - Wound closure [Recovering/Resolving]
  - Fall [Recovering/Resolving]
  - Contusion [Recovering/Resolving]
  - Oxygen consumption [Recovering/Resolving]
  - Syncope [Recovering/Resolving]
  - Head injury [Unknown]
